FAERS Safety Report 18821591 (Version 1)
Quarter: 2021Q1

REPORT INFORMATION
  Report Type: Spontaneous
  Country: US (occurrence: US)
  Receive Date: 20210201
  Receipt Date: 20210201
  Transmission Date: 20210419
  Serious: Yes (Hospitalization, Other)
  Sender: FDA-Public Use
  Company Number: US-BRISTOL-MYERS SQUIBB COMPANY-BMS-2021-007429

PATIENT
  Age: 76 Year
  Sex: Male

DRUGS (3)
  1. CARVEDILOL. [Concomitant]
     Active Substance: CARVEDILOL
     Indication: PRODUCT USED FOR UNKNOWN INDICATION
     Dosage: UNK
     Route: 065
  2. LISINOPRIL. [Concomitant]
     Active Substance: LISINOPRIL
     Indication: PRODUCT USED FOR UNKNOWN INDICATION
     Dosage: UNK
     Route: 065
  3. ELIQUIS [Suspect]
     Active Substance: APIXABAN
     Indication: CEREBROVASCULAR ACCIDENT PROPHYLAXIS
     Dosage: 5 MILLIGRAM, BID
     Route: 048
     Dates: start: 2020

REACTIONS (8)
  - Drug ineffective [Unknown]
  - Skin discolouration [Recovered/Resolved]
  - Torsade de pointes [Unknown]
  - COVID-19 [Unknown]
  - Chromaturia [Recovering/Resolving]
  - Pruritus [Recovered/Resolved]
  - Jaundice [Unknown]
  - Cholelithiasis [Unknown]

NARRATIVE: CASE EVENT DATE: 202101
